FAERS Safety Report 8877250 (Version 1)
Quarter: 2012Q4

REPORT INFORMATION
  Report Type: 
  Country: US (occurrence: US)
  Receive Date: 20121023
  Receipt Date: 20121023
  Transmission Date: 20130627
  Serious: No
  Sender: FDA-Public Use
  Company Number: US-AMGEN-USASP2012058868

PATIENT
  Sex: Male
  Weight: 97.51 kg

DRUGS (16)
  1. ENBREL [Suspect]
     Indication: PRODUCT USED FOR UNKNOWN INDICATION
     Dosage: 50 mg/ml, qwk
     Route: 058
  2. SULFASALAZIN [Concomitant]
     Dosage: 500 mg, UNK
  3. HYDROCODEINE [Concomitant]
     Dosage: 3.5-100
  4. HYDROXYCHLOROQUINE [Concomitant]
     Dosage: 200 mg, UNK
  5. LISINOPRIL [Concomitant]
     Dosage: 10 mg, UNK
  6. LOVAZA [Concomitant]
     Dosage: 1 gm
  7. AMITRIPTYLIN [Concomitant]
     Dosage: 10 mg, UNK
  8. CYMBALTA [Concomitant]
     Dosage: 20 mg, UNK
  9. MULTIVITAMIN                       /00097801/ [Concomitant]
     Dosage: UNK
  10. VITAMIN B-12 [Concomitant]
     Dosage: 100 mcg
  11. VITAMIN D /00107901/ [Concomitant]
     Dosage: 400 UNK, UNK
  12. VITAMIN B 6 [Concomitant]
     Dosage: 50 mg, UNK
  13. COQ [Concomitant]
     Dosage: 10 UNK, UNK
  14. PROBIOTIC                          /06395501/ [Concomitant]
  15. ASA [Concomitant]
     Dosage: 81 mg, UNK
  16. VOLTAREN                           /00372301/ [Concomitant]
     Dosage: UNK

REACTIONS (1)
  - Arthralgia [Unknown]
